FAERS Safety Report 7786702-8 (Version None)
Quarter: 2011Q3

REPORT INFORMATION
  Report Type: 
  Country: None (occurrence: None)
  Receive Date: 20110929
  Receipt Date: 20110926
  Transmission Date: 20111222
  Serious: Yes (Hospitalization)
  Sender: FDA-Public Use
  Company Number: DE-PFIZER INC-2011229218

PATIENT
  Sex: Female

DRUGS (1)
  1. LYRICA [Suspect]
     Dosage: 600 MG, DAILY

REACTIONS (4)
  - DIZZINESS [None]
  - WITHDRAWAL SYNDROME [None]
  - COLD SWEAT [None]
  - NAUSEA [None]
